FAERS Safety Report 10780176 (Version 1)
Quarter: 2015Q1

REPORT INFORMATION
  Report Type: Spontaneous
  Country: US (occurrence: None)
  Receive Date: 20150209
  Receipt Date: 20150209
  Transmission Date: 20150721
  Serious: Yes (Hospitalization)
  Sender: FDA-Public Use
  Company Number: None

PATIENT
  Age: 3 Year
  Sex: Female
  Weight: 16.6 kg

DRUGS (1)
  1. IVERMECTIN. [Suspect]
     Active Substance: IVERMECTIN
     Indication: LICE INFESTATION
     Dosage: 400 MCG/KG, 1X RPT IN 1 WEEK, ORAL
     Route: 048
     Dates: start: 20150126, end: 20150206

REACTIONS (8)
  - Abasia [None]
  - Pain in extremity [None]
  - Peripheral swelling [None]
  - Swelling face [None]
  - Influenza [None]
  - Weight bearing difficulty [None]
  - Joint swelling [None]
  - Nasopharyngitis [None]

NARRATIVE: CASE EVENT DATE: 20150206
